FAERS Safety Report 9816407 (Version 1)
Quarter: 2014Q1

REPORT INFORMATION
  Report Type: Spontaneous
  Country: US (occurrence: US)
  Receive Date: 20140114
  Receipt Date: 20140114
  Transmission Date: 20141002
  Serious: No
  Sender: FDA-Public Use
  Company Number: US-TARO-2013P1016475

PATIENT
  Sex: Female
  Weight: 58.97 kg

DRUGS (2)
  1. DESOXIMETASONE CREAM USP 0.05% [Suspect]
     Route: 061
     Dates: start: 201306
  2. 8 TO 9 UNSPECIFIED PRESCRIPTION MEDICATIONS [Concomitant]

REACTIONS (6)
  - Application site swelling [Not Recovered/Not Resolved]
  - Application site erythema [Recovering/Resolving]
  - Application site pruritus [Recovering/Resolving]
  - Application site pain [Recovering/Resolving]
  - Application site haemorrhage [Recovering/Resolving]
  - Application site exfoliation [Recovering/Resolving]
